FAERS Safety Report 5704778-6 (Version None)
Quarter: 2008Q2

REPORT INFORMATION
  Report Type: 
  Country: None (occurrence: None)
  Receive Date: 20080410
  Receipt Date: 20080403
  Transmission Date: 20081010
  Serious: Yes (Death)
  Sender: FDA-Public Use
  Company Number: 2007US001728

PATIENT
  Age: 54 Year
  Sex: Male
  Weight: 63.9 kg

DRUGS (7)
  1. PROGRAF [Suspect]
     Indication: KIDNEY TRANSPLANT REJECTION
     Dosage: 1.5 MG, UID/QD, ORAL; 0.5 MG, BID, ORAL
     Route: 048
     Dates: start: 20060215, end: 20060323
  2. PROGRAF [Suspect]
     Indication: KIDNEY TRANSPLANT REJECTION
     Dosage: 1.5 MG, UID/QD, ORAL; 0.5 MG, BID, ORAL
     Route: 048
     Dates: start: 20060324, end: 20070725
  3. PROGRAF [Suspect]
     Indication: KIDNEY TRANSPLANT REJECTION
     Dosage: 1.5 MG, UID/QD, ORAL; 0.5 MG, BID, ORAL
     Route: 048
     Dates: start: 20051121
  4. CELLCEPT [Concomitant]
  5. NORVASC [Concomitant]
  6. METOPROLOL TARTRATE [Concomitant]
  7. VALCYTE [Concomitant]

REACTIONS (14)
  - BARRETT'S OESOPHAGUS [None]
  - DYSPNOEA [None]
  - FLUID OVERLOAD [None]
  - GENERAL PHYSICAL HEALTH DETERIORATION [None]
  - HAEMATEMESIS [None]
  - PLEURAL EFFUSION [None]
  - PORTAL HYPERTENSION [None]
  - PULMONARY HYPERTENSION [None]
  - PYLORIC STENOSIS [None]
  - RENAL FAILURE [None]
  - SPLENOMEGALY [None]
  - TACHYCARDIA [None]
  - THROMBOSIS [None]
  - URINE OUTPUT DECREASED [None]
